FAERS Safety Report 14576715 (Version 2)
Quarter: 2018Q1

REPORT INFORMATION
  Report Type: Spontaneous
  Country: US (occurrence: US)
  Receive Date: 20180227
  Receipt Date: 20180305
  Transmission Date: 20180509
  Serious: No
  Sender: FDA-Public Use
  Company Number: US-BAYER-2018-033877

PATIENT
  Sex: Male
  Weight: 85 kg

DRUGS (6)
  1. MIRALAX [Suspect]
     Active Substance: POLYETHYLENE GLYCOL 3350
     Indication: GASTROINTESTINAL DISORDER
     Dosage: 0.5 DF, QD
     Route: 048
  2. CRESTOR [Concomitant]
     Active Substance: ROSUVASTATIN CALCIUM
     Dosage: UNK
  3. TAMSULOSIN [Concomitant]
     Active Substance: TAMSULOSIN
     Dosage: UNK
  4. VALSARTAN. [Concomitant]
     Active Substance: VALSARTAN
     Dosage: UNK
  5. MIRABEGRON [Concomitant]
     Active Substance: MIRABEGRON
     Dosage: UNK
  6. APTOCAINE [Concomitant]
     Dosage: UNK

REACTIONS (4)
  - Incorrect dosage administered [Unknown]
  - Diarrhoea [Unknown]
  - Abdominal discomfort [Unknown]
  - Anal incontinence [None]
